FAERS Safety Report 8543870-8 (Version None)
Quarter: 2012Q3

REPORT INFORMATION
  Report Type: 
  Country: None (occurrence: None)
  Receive Date: 20120727
  Receipt Date: 20120720
  Transmission Date: 20120928
  Serious: Yes (Hospitalization)
  Sender: FDA-Public Use
  Company Number: PHEH2011US010244

PATIENT
  Sex: Male
  Weight: 85.3 kg

DRUGS (11)
  1. LAMICTAL [Concomitant]
     Indication: PAIN
     Dosage: 25 MG, BID
  2. MELOXICAM [Concomitant]
  3. NASONEX [Concomitant]
     Dosage: UNK UKN, BID
  4. ALPRAZOLAM [Concomitant]
     Dosage: 0.25 MG, TID
  5. GEMFIBROZIL [Concomitant]
     Dosage: 600 MG, BID
  6. MAGNESIUM OXIDE [Concomitant]
     Dosage: 400 MG, BID
  7. GILENYA [Suspect]
     Indication: RELAPSING-REMITTING MULTIPLE SCLEROSIS
     Dosage: 0.5 MG, QD
     Route: 048
     Dates: start: 20110817, end: 20111101
  8. AMANTADINE HCL [Concomitant]
     Dosage: 100 MG, BID
  9. DIAZEPAM [Concomitant]
     Dosage: 5 MG, QHS
  10. AMITRIP [Concomitant]
     Dosage: 150 MG, QHS
  11. PROTONIX [Concomitant]
     Dosage: 40 MG, DAILY

REACTIONS (30)
  - ENCEPHALOPATHY [None]
  - CEREBELLAR SYNDROME [None]
  - HAEMOGLOBIN DECREASED [None]
  - CHILLS [None]
  - CONFUSIONAL STATE [None]
  - DECREASED APPETITE [None]
  - DIARRHOEA [None]
  - MULTIPLE SCLEROSIS RELAPSE [None]
  - BALANCE DISORDER [None]
  - MEMORY IMPAIRMENT [None]
  - PARAPARESIS [None]
  - GAIT DISTURBANCE [None]
  - MEAN CELL VOLUME INCREASED [None]
  - PROTEIN TOTAL INCREASED [None]
  - HYPERTONIA [None]
  - PARAESTHESIA [None]
  - ATAXIA [None]
  - BLOOD PRESSURE SYSTOLIC INCREASED [None]
  - TOXIC ENCEPHALOPATHY [None]
  - PYREXIA [None]
  - DISTURBANCE IN ATTENTION [None]
  - HYPOAESTHESIA [None]
  - AMNESIA [None]
  - BLOOD POTASSIUM DECREASED [None]
  - DISORIENTATION [None]
  - MENTAL STATUS CHANGES [None]
  - NAUSEA [None]
  - CSF PROTEIN INCREASED [None]
  - APHASIA [None]
  - DYSPNOEA [None]
